FAERS Safety Report 9010601 (Version 2)
Quarter: 2013Q1

REPORT INFORMATION
  Report Type: Spontaneous
  Country: US (occurrence: US)
  Receive Date: 20130109
  Receipt Date: 20130116
  Transmission Date: 20140127
  Serious: Yes (Death, Other)
  Sender: FDA-Public Use
  Company Number: US-009507513-1301USA001734

PATIENT
  Sex: Male

DRUGS (16)
  1. NOXAFIL [Suspect]
     Indication: SINUSITIS ASPERGILLUS
     Dosage: 200 MG, TID
     Route: 048
     Dates: start: 20121128
  2. ACTIGALL [Concomitant]
  3. AMBIEN [Concomitant]
  4. ATIVAN [Concomitant]
  5. CARAFATE [Concomitant]
  6. CELLCEPT [Concomitant]
  7. COMPAZINE [Concomitant]
  8. EFFEXOR XR [Concomitant]
  9. HUMALOG [Concomitant]
  10. LEVAQUIN [Concomitant]
  11. NEURONTIN [Concomitant]
  12. PROGRAF [Concomitant]
  13. PROTONIX [Concomitant]
  14. ULTRAM [Concomitant]
  15. ZOFRAN [Concomitant]
  16. ZOVIRAX [Concomitant]

REACTIONS (1)
  - Encephalopathy [Fatal]
